FAERS Safety Report 20383900 (Version 1)
Quarter: 2022Q1

REPORT INFORMATION
  Report Type: Spontaneous
  Country: ES (occurrence: ES)
  Receive Date: 20220127
  Receipt Date: 20220127
  Transmission Date: 20220423
  Serious: Yes (Hospitalization)
  Sender: FDA-Public Use
  Company Number: None

PATIENT
  Age: 60 Year
  Sex: Male

DRUGS (6)
  1. CELLCEPT [Suspect]
     Active Substance: MYCOPHENOLATE MOFETIL
     Indication: Solid organ transplant
     Route: 048
     Dates: start: 20120924
  2. TACROLIMUS [Suspect]
     Active Substance: TACROLIMUS
     Indication: Solid organ transplant
     Route: 048
     Dates: start: 20190221
  3. PREDNISONE [Suspect]
     Active Substance: PREDNISONE
     Indication: Solid organ transplant
     Route: 048
     Dates: start: 20120924
  4. COMIRNATY [Suspect]
     Active Substance: TOZINAMERAN
     Indication: COVID-19 immunisation
     Dosage: 2 DOSIS
     Route: 030
     Dates: start: 20210521, end: 20210521
  5. COMIRNATY [Suspect]
     Active Substance: TOZINAMERAN
     Dosage: 3 DOSIS
     Route: 030
     Dates: start: 20210922, end: 20210922
  6. COMIRNATY [Suspect]
     Active Substance: TOZINAMERAN
     Dosage: 1 DOSIS
     Route: 030
     Dates: start: 20210430, end: 20210430

REACTIONS (2)
  - COVID-19 pneumonia [Not Recovered/Not Resolved]
  - Vaccination failure [Not Recovered/Not Resolved]

NARRATIVE: CASE EVENT DATE: 20220106
